FAERS Safety Report 9188765 (Version 1)
Quarter: 2013Q1

REPORT INFORMATION
  Report Type: Spontaneous
  Country: US (occurrence: US)
  Receive Date: 20130326
  Receipt Date: 20130326
  Transmission Date: 20140127
  Serious: Yes (Other)
  Sender: FDA-Public Use
  Company Number: US-ELI_LILLY_AND_COMPANY-US201301009912

PATIENT
  Sex: Male

DRUGS (14)
  1. AXIRON [Suspect]
     Indication: BLOOD TESTOSTERONE DECREASED
     Dosage: 60 MG, UNK
     Dates: start: 201111
  2. AXIRON [Suspect]
     Dosage: UNK, ONCE IN THE MORNING AND ONCE IN THE EVENIING
     Dates: start: 201209
  3. AXIRON [Suspect]
     Dosage: 120 MG, QD
     Dates: start: 201211
  4. CIALIS [Suspect]
     Indication: ERECTILE DYSFUNCTION
     Dosage: 5 MG, QD
  5. CIALIS [Suspect]
     Dosage: 20 MG, QOD
     Dates: start: 201209
  6. METFORMIN [Concomitant]
     Dosage: 1000 MG, BID
  7. SYNTHROID [Concomitant]
     Dosage: 100 UG, UNK
  8. ADVAIR DISKUS [Concomitant]
     Dosage: UNK UNK, BID
  9. SPIRIVA [Concomitant]
  10. DIOVAN [Concomitant]
  11. ALBUTEROL HFA [Concomitant]
  12. ASA [Concomitant]
     Dosage: 81 MG, UNK
  13. FISH OIL [Concomitant]
     Dosage: 1000 MG, TID
  14. GLUCOSAMINE + CHONDROITIN [Concomitant]

REACTIONS (5)
  - Polycythaemia [Unknown]
  - Hypothyroidism [Unknown]
  - Joint swelling [Unknown]
  - Sleep apnoea syndrome [Unknown]
  - Drug ineffective [Unknown]
